FAERS Safety Report 4562208-4 (Version None)
Quarter: 2005Q1

REPORT INFORMATION
  Report Type: 
  Country: None (occurrence: None)
  Receive Date: 20050121
  Receipt Date: 20050117
  Transmission Date: 20050727
  Serious: Yes (Hospitalization, Disabling)
  Sender: FDA-Public Use
  Company Number: HQ8910127MAR2001

PATIENT
  Age: 55 Year
  Sex: Female

DRUGS (1)
  1. DIMETAPP [Suspect]
     Dosage: ORAL
     Route: 048

REACTIONS (8)
  - ACUTE RESPIRATORY FAILURE [None]
  - BRAIN SCAN ABNORMAL [None]
  - CEREBRAL HAEMORRHAGE [None]
  - HAEMORRHAGIC STROKE [None]
  - HYDROCEPHALUS [None]
  - HYPERTENSION [None]
  - ROAD TRAFFIC ACCIDENT [None]
  - TACHYCARDIA [None]
